FAERS Safety Report 9251610 (Version 1)
Quarter: 2013Q2

REPORT INFORMATION
  Report Type: Spontaneous
  Country: US (occurrence: US)
  Receive Date: 20130424
  Receipt Date: 20130424
  Transmission Date: 20140414
  Serious: No
  Sender: FDA-Public Use
  Company Number: US-BAYER-2013-051163

PATIENT
  Age: 58 Year
  Sex: Female
  Weight: 113.38 kg

DRUGS (3)
  1. ALEVE CAPLET [Suspect]
     Indication: BACK PAIN
     Dosage: UNK
     Route: 048
     Dates: start: 2010, end: 2010
  2. SIMVASTATIN [Concomitant]
  3. MULTIVITAMIN [Concomitant]

REACTIONS (1)
  - Swelling [Recovered/Resolved]
